FAERS Safety Report 6268210-9 (Version None)
Quarter: 2009Q3

REPORT INFORMATION
  Report Type: 
  Country: None (occurrence: None)
  Receive Date: 20090713
  Receipt Date: 20090713
  Transmission Date: 20100115
  Serious: Yes (Hospitalization)
  Sender: FDA-Public Use
  Company Number: None

PATIENT
  Sex: Female
  Weight: 42.59 kg

DRUGS (9)
  1. ABRAXANE [Suspect]
     Dosage: 423 MG
  2. COLACE [Concomitant]
  3. COMPAZINE [Concomitant]
  4. CYMBALTA [Concomitant]
  5. FENTANYL-100 [Concomitant]
  6. NEURONTIN [Concomitant]
  7. PERCOCET [Concomitant]
  8. ROBAXIN [Concomitant]
  9. XANAX [Concomitant]

REACTIONS (4)
  - ABDOMINAL PAIN [None]
  - CONSTIPATION [None]
  - FLATULENCE [None]
  - NAUSEA [None]
